FAERS Safety Report 8797557 (Version 1)
Quarter: 2012Q4

REPORT INFORMATION
  Report Type: 
  Country: BR (occurrence: BR)
  Receive Date: 20120919
  Receipt Date: 20120919
  Transmission Date: 20130627
  Serious: Yes (Other)
  Sender: FDA-Public Use
  Company Number: BR-ROCHE-1127154

PATIENT
  Sex: Female

DRUGS (1)
  1. FLANAX [Suspect]
     Indication: TOOTH INFECTION
     Dosage: 2 tablet of 250 mg
     Route: 048

REACTIONS (1)
  - Tooth infection [Not Recovered/Not Resolved]
